FAERS Safety Report 5554035-6 (Version None)
Quarter: 2007Q4

REPORT INFORMATION
  Report Type: 
  Country: None (occurrence: None)
  Receive Date: 20071213
  Receipt Date: 20070620
  Transmission Date: 20080405
  Serious: No
  Sender: FDA-Public Use
  Company Number: A0658937A

PATIENT
  Age: 38 Year
  Sex: Male

DRUGS (4)
  1. LEXIVA [Suspect]
     Indication: HIV INFECTION
     Dosage: 700MG FOUR TIMES PER DAY
     Route: 048
  2. TRUVADA [Concomitant]
  3. UNKNOWN MEDICATION [Concomitant]
  4. VIREAD [Concomitant]

REACTIONS (1)
  - HAEMATOCHEZIA [None]
